FAERS Safety Report 24303145 (Version 1)
Quarter: 2024Q3

REPORT INFORMATION
  Report Type: Report from Study
  Country: CA (occurrence: CA)
  Receive Date: 20240910
  Receipt Date: 20240910
  Transmission Date: 20241017
  Serious: Yes (Other)
  Sender: BIOCON
  Company Number: CA-BIOCON BIOLOGICS LIMITED-BBL2024006644

PATIENT

DRUGS (2)
  1. HULIO [Suspect]
     Active Substance: ADALIMUMAB-FKJP
     Indication: Crohn^s disease
     Dosage: 40 MILLIGRAM, Q2W
     Route: 058
  2. HULIO [Suspect]
     Active Substance: ADALIMUMAB-FKJP
     Dosage: 40 MILLIGRAM
     Route: 058

REACTIONS (12)
  - Mean cell volume increased [Unknown]
  - Ear discomfort [Unknown]
  - Condition aggravated [Unknown]
  - Crohn^s disease [Unknown]
  - Nasal congestion [Unknown]
  - Nasopharyngitis [Unknown]
  - Cough [Unknown]
  - Injection site pruritus [Unknown]
  - Injection site swelling [Unknown]
  - Headache [Unknown]
  - Injection site reaction [Unknown]
  - Injection site erythema [Unknown]
